FAERS Safety Report 23092776 (Version 1)
Quarter: 2023Q4

REPORT INFORMATION
  Report Type: Spontaneous
  Country: US (occurrence: US)
  Receive Date: 20231021
  Receipt Date: 20231021
  Transmission Date: 20240110
  Serious: Yes (Hospitalization, Other)
  Sender: FDA-Public Use
  Company Number: US-MLMSERVICE-20231005-4590319-2

PATIENT
  Age: 62 Year
  Sex: Male

DRUGS (3)
  1. PHENYLEPHRINE HYDROCHLORIDE [Suspect]
     Active Substance: PHENYLEPHRINE HYDROCHLORIDE
     Indication: Vasopressive therapy
     Dosage: MAXIMUM DOSES
  2. VASOPRESSIN [Suspect]
     Active Substance: VASOPRESSIN
     Indication: Vasopressive therapy
     Dosage: MAXIMUM DOSES
  3. NOREPINEPHRINE [Suspect]
     Active Substance: NOREPINEPHRINE
     Indication: Vasopressive therapy
     Dosage: MAXIMUM DOSES

REACTIONS (3)
  - Gangrene [Unknown]
  - Necrosis ischaemic [Recovering/Resolving]
  - Peripheral ischaemia [Recovering/Resolving]
